FAERS Safety Report 6395682-1 (Version None)
Quarter: 2009Q4

REPORT INFORMATION
  Report Type: 
  Country: None (occurrence: None)
  Receive Date: 20091009
  Receipt Date: 20090928
  Transmission Date: 20100525
  Serious: Yes (Hospitalization, Other)
  Sender: FDA-Public Use
  Company Number: PHHY2009BR42247

PATIENT
  Sex: Male

DRUGS (4)
  1. EXELON [Suspect]
     Indication: MEMORY IMPAIRMENT
     Dosage: 1 PATCH (9 MG/5 CM2) PER DAY
     Route: 062
  2. PENTOXIFYLLINE [Concomitant]
     Indication: HEPATIC CIRRHOSIS
     Dosage: UNK
     Route: 048
  3. PROPRANOLOL [Concomitant]
     Indication: HEPATIC CIRRHOSIS
     Dosage: 10 MG, BID
     Route: 048
  4. IRON W/VITAMINS NOS [Concomitant]
     Indication: ANAEMIA
     Dosage: UNK
     Route: 048

REACTIONS (4)
  - ANAEMIA [None]
  - MEMORY IMPAIRMENT [None]
  - OESOPHAGEAL VARICES HAEMORRHAGE [None]
  - TREMOR [None]
